FAERS Safety Report 6957767-8 (Version None)
Quarter: 2010Q3

REPORT INFORMATION
  Report Type: 
  Country: None (occurrence: None)
  Receive Date: 20100831
  Receipt Date: 20100825
  Transmission Date: 20110219
  Serious: Yes (Hospitalization, Other)
  Sender: FDA-Public Use
  Company Number: US-SHIRE-ALL1-2010-04466

PATIENT
  Sex: Male
  Weight: 90.703 kg

DRUGS (14)
  1. FOSRENOL [Suspect]
     Indication: HYPERPHOSPHATAEMIA
     Dosage: 1000 MG, WITH MEALS OR SNACKS
     Route: 048
     Dates: start: 20090101
  2. RAMIPRIL [Concomitant]
     Indication: DIABETES MELLITUS
     Dosage: 7 MG, 2X/DAY:BID
     Route: 048
  3. RAMIPRIL [Concomitant]
     Indication: BLOOD PRESSURE INCREASED
  4. TRICOR [Concomitant]
     Indication: BLOOD CHOLESTEROL INCREASED
     Dosage: 145 MG, 1X/DAY:QD
     Route: 048
  5. TEKTURNA [Concomitant]
     Indication: CARDIAC DISORDER
     Dosage: 150 MG, 1X/DAY:QD
     Route: 048
  6. METOPROLOL TARTRATE [Concomitant]
     Indication: CARDIAC DISORDER
     Dosage: 25 MG, 1X/DAY:QD
     Route: 048
  7. PRAVASTATIN [Concomitant]
     Indication: BLOOD CHOLESTEROL INCREASED
     Dosage: 40 MG, 1X/DAY:QD
     Route: 048
  8. HUMULIN 70/30 [Concomitant]
     Indication: DIABETES MELLITUS
     Dosage: 70/30 MIX  35 IU, 1X/DAY:QD IN MORNING
     Route: 058
  9. HUMULIN 70/30 [Concomitant]
     Dosage: 20 IU IN THE EVENING, 1X/DAY:QD (70/30)
     Route: 058
  10. ASPIRIN [Concomitant]
     Indication: CARDIAC DISORDER
     Dosage: 325 MG, 1X/DAY:QD
     Route: 048
  11. NIACIN [Concomitant]
     Indication: BLOOD TRIGLYCERIDES ABNORMAL
     Dosage: 500 MG, 2X/DAY:BID
     Route: 048
  12. VITAMINS                           /00067501/ [Concomitant]
     Indication: VITAMIN SUPPLEMENTATION
     Dosage: TWO TABLETS UNK, 1X/DAY:QD
     Route: 048
  13. DALYTE [Concomitant]
     Indication: VITAMIN SUPPLEMENTATION
     Dosage: UNK MG, 1X/DAY:QD
     Route: 048
  14. FIBER [Concomitant]
     Indication: PRODUCT USED FOR UNKNOWN INDICATION
     Dosage: UNK, UNKNOWN
     Route: 048
     Dates: end: 20100801

REACTIONS (3)
  - DIARRHOEA [None]
  - PNEUMONIA [None]
  - VASCULAR RUPTURE [None]
